FAERS Safety Report 6871966-5 (Version None)
Quarter: 2010Q3

REPORT INFORMATION
  Report Type: 
  Country: None (occurrence: None)
  Receive Date: 20100723
  Receipt Date: 20100715
  Transmission Date: 20110219
  Serious: Yes (Other)
  Sender: FDA-Public Use
  Company Number: JP-JNJFOC-20100508152

PATIENT
  Age: 57 Year
  Sex: Female

DRUGS (2)
  1. DUROTEP MT PATCH [Suspect]
     Indication: CANCER PAIN
     Route: 062
  2. DUROTEP MT PATCH [Suspect]
     Route: 062

REACTIONS (7)
  - DELUSION [None]
  - DRUG WITHDRAWAL SYNDROME [None]
  - HALLUCINATION, AUDITORY [None]
  - HALLUCINATION, OLFACTORY [None]
  - HALLUCINATION, VISUAL [None]
  - TREATMENT NONCOMPLIANCE [None]
  - VOMITING [None]
